FAERS Safety Report 6982034-6 (Version None)
Quarter: 2010Q3

REPORT INFORMATION
  Report Type: 
  Country: None (occurrence: None)
  Receive Date: 20100914
  Receipt Date: 20091109
  Transmission Date: 20110219
  Serious: No
  Sender: FDA-Public Use
  Company Number: US-PFIZER INC-2009296222

PATIENT
  Sex: Male
  Weight: 56.7 kg

DRUGS (11)
  1. LYRICA [Suspect]
     Indication: PAIN IN EXTREMITY
     Dosage: 50 MG, 2X/DAY
     Route: 048
     Dates: start: 20091103
  2. METOLAZONE [Concomitant]
     Dosage: 2.5 MG, 1X/DAY
     Route: 048
  3. FUROSEMIDE [Concomitant]
     Indication: DIURETIC THERAPY
     Dosage: 40 MG, 2X/DAY
     Route: 048
  4. POTASSIUM CITRATE [Concomitant]
     Dosage: 20 MEQ, 3X/DAY
     Route: 048
  5. AVODART [Concomitant]
     Indication: PROSTATIC DISORDER
     Dosage: 0.5 MG, 1X/DAY
     Route: 048
  6. UROXATRAL [Concomitant]
     Dosage: 10 MG, 1X/DAY
     Route: 048
  7. FERROUS SULFATE TAB [Concomitant]
     Dosage: 28 MG, 1X/DAY
     Route: 048
  8. SIMVASTATIN [Concomitant]
     Indication: CARDIAC DISORDER
     Dosage: 20 MG, 1X/DAY
     Route: 048
  9. ACETYLSALICYLIC ACID [Concomitant]
     Indication: CARDIAC DISORDER
     Dosage: 81 MG, 1X/DAY
     Route: 048
  10. VITAMINS [Concomitant]
     Dosage: UNK
  11. LUNESTA [Concomitant]
     Indication: SLEEP DISORDER
     Dosage: 2 MG, 1X/DAY

REACTIONS (4)
  - BALANCE DISORDER [None]
  - CONFUSIONAL STATE [None]
  - DYSPHONIA [None]
  - VISION BLURRED [None]
